FAERS Safety Report 4880760-6 (Version None)
Quarter: 2006Q1

REPORT INFORMATION
  Report Type: 
  Country: None (occurrence: None)
  Receive Date: 20060111
  Receipt Date: 20051110
  Transmission Date: 20060701
  Serious: No
  Sender: FDA-Public Use
  Company Number: 2005S1000252

PATIENT
  Age: 62 Year
  Weight: 90.9 kg

DRUGS (1)
  1. CUBICIN [Suspect]
     Indication: CELLULITIS
     Dosage: 370 MG;Q24H;IV
     Route: 042
     Dates: start: 20051001, end: 20051001

REACTIONS (2)
  - MEDICATION ERROR [None]
  - NO ADVERSE DRUG EFFECT [None]
